FAERS Safety Report 16090018 (Version 1)
Quarter: 2019Q1

REPORT INFORMATION
  Report Type: Spontaneous
  Country: US (occurrence: US)
  Receive Date: 20190319
  Receipt Date: 20190319
  Transmission Date: 20190418
  Serious: Yes (Hospitalization, Other)
  Sender: FDA-Public Use
  Company Number: US-SA-2019SA069238

PATIENT
  Age: 27 Year
  Sex: Female
  Weight: 61.22 kg

DRUGS (8)
  1. METHYLPREDNISOLONE. [Concomitant]
     Active Substance: METHYLPREDNISOLONE
     Indication: ANAPHYLACTIC REACTION
     Dosage: 132 MG, PRN
     Route: 042
     Dates: start: 20161025
  2. NORMAL SALINE [Concomitant]
     Active Substance: SODIUM CHLORIDE
     Dosage: 0.9 %, PRN
     Route: 042
  3. CLARITIN-D NOS [Concomitant]
     Active Substance: LORATADINE\PSEUDOEPHEDRINE SULFATE
     Dosage: 1 DF, PRN
     Route: 048
     Dates: start: 20190213
  4. DIPHENHYDRAMINE HYDROCHLORIDE. [Concomitant]
     Active Substance: DIPHENHYDRAMINE HYDROCHLORIDE
     Indication: ANAPHYLACTIC REACTION
     Dosage: 500 MG, PRN
     Route: 042
     Dates: start: 20161025
  5. STERILE WATER [Concomitant]
     Active Substance: WATER
     Dosage: 1 EACH, PRN
     Route: 042
     Dates: start: 20161025
  6. CEREZYME [Suspect]
     Active Substance: IMIGLUCERASE
     Indication: GAUCHER^S DISEASE
     Dosage: 2000 IU, QOW
     Route: 041
     Dates: start: 20161011
  7. EPIPEN [Concomitant]
     Active Substance: EPINEPHRINE
     Indication: ANAPHYLACTIC REACTION
     Dosage: 0.3 MG, PRN
     Route: 030
     Dates: start: 20161025
  8. HEPARIN [Concomitant]
     Active Substance: HEPARIN SODIUM
     Dosage: 100 IU/ML, PRN
     Route: 042
     Dates: start: 20161025

REACTIONS (1)
  - Thyroid operation [Unknown]

NARRATIVE: CASE EVENT DATE: 20190214
